FAERS Safety Report 5967696-4 (Version None)
Quarter: 2008Q4

REPORT INFORMATION
  Report Type: 
  Country: None (occurrence: None)
  Receive Date: 20081126
  Receipt Date: 20081114
  Transmission Date: 20090506
  Serious: Yes (Other)
  Sender: FDA-Public Use
  Company Number: BE-RANBAXY-2008RR-19406

PATIENT
  Age: 52 Year
  Sex: Female

DRUGS (11)
  1. RISPERIDONE [Suspect]
     Dosage: 2 MG, QD
     Dates: end: 20050901
  2. FLUOXETINE [Suspect]
     Dosage: 20 MG, QD
     Dates: start: 19980601, end: 20011201
  3. PAROXETINE HCL [Suspect]
     Dosage: 20 MG, QD
     Dates: start: 20011201, end: 20020801
  4. SERLAIN [Suspect]
     Dosage: 50 MG, QD
     Dates: start: 20020801, end: 20021101
  5. VENLAFAXINE HCL [Suspect]
     Dosage: 75 MG, QD
     Dates: start: 20021101, end: 20050901
  6. TRAZODONE HCL [Suspect]
     Dosage: 150 MG, QD
     Dates: start: 20021101, end: 20050901
  7. TRAZODONE HCL [Suspect]
     Dosage: UNK
  8. SERTRALINE [Suspect]
     Dosage: 20-40 MG
     Dates: start: 20021101, end: 20050601
  9. TRAZODONE HCL [Suspect]
     Dosage: 150 MG, QD
     Dates: start: 20050901
  10. ALPRAZOLAM [Suspect]
     Dosage: UNK
     Dates: start: 20050301
  11. LORAZEPAM [Suspect]
     Dosage: UNK

REACTIONS (2)
  - HYPERPROLACTINAEMIA [None]
  - OSTEOPOROSIS [None]
